FAERS Safety Report 18727939 (Version 2)
Quarter: 2021Q1

REPORT INFORMATION
  Report Type: Spontaneous
  Country: CA (occurrence: CA)
  Receive Date: 20210111
  Receipt Date: 20210120
  Transmission Date: 20210419
  Serious: Yes (Other)
  Sender: FDA-Public Use
  Company Number: CA-JNJFOC-20210109281

PATIENT
  Age: 63 Year
  Sex: Female

DRUGS (2)
  1. REMICADE [Suspect]
     Active Substance: INFLIXIMAB
     Indication: CROHN^S DISEASE
     Route: 042
  2. AMOXICILLIN TRIHYDRATE;CLAVULANATE POTASSIUM [Concomitant]
     Active Substance: AMOXICILLIN\CLAVULANATE POTASSIUM
     Route: 048

REACTIONS (5)
  - Disease recurrence [Unknown]
  - Fatigue [Unknown]
  - Drug ineffective [Unknown]
  - Intestinal fistula [Unknown]
  - Bowel movement irregularity [Unknown]
